FAERS Safety Report 7490572-5 (Version None)
Quarter: 2011Q2

REPORT INFORMATION
  Report Type: 
  Country: None (occurrence: None)
  Receive Date: 20110519
  Receipt Date: 20110506
  Transmission Date: 20111010
  Serious: Yes (Hospitalization, Other)
  Sender: FDA-Public Use
  Company Number: US-ELI_LILLY_AND_COMPANY-US201005004071

PATIENT
  Sex: Female

DRUGS (7)
  1. FORTEO [Suspect]
     Indication: OSTEOPOROSIS
     Dosage: 20 UG, QD
     Dates: start: 20090701
  2. FORTEO [Suspect]
     Dosage: 20 UG, QD
  3. VITAMIN D [Concomitant]
  4. MULTI-VITAMIN [Concomitant]
  5. CALCIUM CARBONATE [Concomitant]
  6. PROZAC [Concomitant]
  7. TRAMADOL HCL [Concomitant]

REACTIONS (5)
  - CARDIAC FLUTTER [None]
  - HEART RATE IRREGULAR [None]
  - FEMUR FRACTURE [None]
  - MUSCLE SPASMS [None]
  - FALL [None]
